FAERS Safety Report 24877150 (Version 1)
Quarter: 2025Q1

REPORT INFORMATION
  Report Type: Spontaneous
  Country: JP (occurrence: JP)
  Receive Date: 20250123
  Receipt Date: 20250123
  Transmission Date: 20250409
  Serious: Yes (Other)
  Sender: ABON PHARMACEUTICALS LLC
  Company Number: JP-ABP-000067

PATIENT
  Age: 15 Year
  Sex: Male

DRUGS (2)
  1. CYCLOSPORINE [Concomitant]
     Active Substance: CYCLOSPORINE
     Indication: Product used for unknown indication
     Route: 065
  2. ATOVAQUONE [Suspect]
     Active Substance: ATOVAQUONE
     Indication: Pneumocystis jirovecii pneumonia
     Dosage: TOTAL DOSE OF ATOVAQUONE ADMINISTERED WAS 655,500 MG
     Route: 048

REACTIONS (1)
  - Corneal opacity [Not Recovered/Not Resolved]
